FAERS Safety Report 19840370 (Version 1)
Quarter: 2021Q3

REPORT INFORMATION
  Report Type: Spontaneous
  Country: US (occurrence: US)
  Receive Date: 20210914
  Receipt Date: 20210914
  Transmission Date: 20211014
  Serious: No
  Sender: FDA-Public Use
  Company Number: None

PATIENT
  Age: 83 Year
  Sex: Male
  Weight: 79 kg

DRUGS (2)
  1. TEMAZEPAM (TEMAZEPAM 15MG CAP) [Suspect]
     Active Substance: TEMAZEPAM
     Indication: PRODUCT USED FOR UNKNOWN INDICATION
     Route: 048
     Dates: start: 20210301, end: 20210415
  2. DOXYLAMINE (DOXYLAMINE SUCCINATE 25MG TAB)) [Suspect]
     Active Substance: DOXYLAMINE
     Indication: COUGH

REACTIONS (12)
  - Urinary tract infection [None]
  - Bladder dilatation [None]
  - Incorrect dose administered [None]
  - Aggression [None]
  - Mental disorder [None]
  - Delirium [None]
  - Condition aggravated [None]
  - Agitation [None]
  - Urinary retention [None]
  - Decreased appetite [None]
  - Pyuria [None]
  - Hallucination [None]

NARRATIVE: CASE EVENT DATE: 20210415
